FAERS Safety Report 5655239-4 (Version None)
Quarter: 2008Q1

REPORT INFORMATION
  Report Type: 
  Country: None (occurrence: None)
  Receive Date: 20080307
  Receipt Date: 20080229
  Transmission Date: 20080703
  Serious: Yes (Hospitalization)
  Sender: FDA-Public Use
  Company Number: A0712707A

PATIENT
  Age: 82 Year
  Sex: Female

DRUGS (10)
  1. ADVAIR DISKUS 100/50 [Suspect]
     Indication: CHRONIC OBSTRUCTIVE PULMONARY DISEASE
     Route: 055
     Dates: start: 20060101
  2. ALBUTEROL [Concomitant]
  3. PROZAC [Concomitant]
  4. FOLIC ACID [Concomitant]
  5. FIBERCON [Concomitant]
  6. CALTRATE [Concomitant]
  7. VIT C [Concomitant]
  8. ECOTRIN [Concomitant]
  9. CARVEDILOL [Concomitant]
  10. VYTORIN [Concomitant]

REACTIONS (3)
  - CONSTIPATION [None]
  - RECTAL FISSURE [None]
  - RECTAL HAEMORRHAGE [None]
